FAERS Safety Report 23091152 (Version 1)
Quarter: 2023Q4

REPORT INFORMATION
  Report Type: Report from Study
  Country: US (occurrence: US)
  Receive Date: 20231020
  Receipt Date: 20231020
  Transmission Date: 20240109
  Serious: Yes (Death)
  Sender: FDA-Public Use
  Company Number: US-PFIZER INC-PV202300169963

PATIENT
  Age: 80 Year
  Sex: Male

DRUGS (21)
  1. VYNDAMAX [Suspect]
     Active Substance: TAFAMIDIS
     Dosage: 61 MG, TAKE 1 CAPSULE (61MG) BY MOUTH ONE TIME DAILY
     Route: 048
  2. DOCUSATE SOD [Concomitant]
     Dosage: UNK
  3. METOPROLOL SUCCINATE [Concomitant]
     Active Substance: METOPROLOL SUCCINATE
     Dosage: UNK
  4. PANTOPRAZOLE [Concomitant]
     Active Substance: PANTOPRAZOLE
     Dosage: UNK
  5. SODIUM CHLORIDE [Concomitant]
     Active Substance: SODIUM CHLORIDE
  6. FUROSEMIDE [Concomitant]
     Active Substance: FUROSEMIDE
     Dosage: UNK
  7. ABIRATERONE [Concomitant]
     Active Substance: ABIRATERONE
     Dosage: UNK
  8. FERROUS SULFATE [Concomitant]
     Active Substance: FERROUS SULFATE
     Dosage: UNK
  9. TAMSULOSIN [Concomitant]
     Active Substance: TAMSULOSIN
     Dosage: UNK
  10. SPIRONOLACTONE [Concomitant]
     Active Substance: SPIRONOLACTONE
     Dosage: UNK
  11. ROSUVASTATIN [Concomitant]
     Active Substance: ROSUVASTATIN
     Dosage: UNK
  12. AZELASTINE [Concomitant]
     Active Substance: AZELASTINE
     Dosage: UNK
  13. HYDROXYZINE [Concomitant]
     Active Substance: HYDROXYZINE HYDROCHLORIDE
     Dosage: UNK
  14. QUETIAPINE [Concomitant]
     Active Substance: QUETIAPINE
     Dosage: UNK
  15. ZOLPIDEM [Concomitant]
     Active Substance: ZOLPIDEM TARTRATE
     Dosage: UNK
  16. PREDNISONE [Concomitant]
     Active Substance: PREDNISONE
     Dosage: UNK
  17. OXYCODONE [Concomitant]
     Active Substance: OXYCODONE
     Dosage: UNK
  18. NYSTOP [Concomitant]
     Active Substance: NYSTATIN
     Dosage: UNK, POW 1000000
  19. ELIQUIS [Concomitant]
     Active Substance: APIXABAN
     Dosage: UNK
  20. CHLORIDE ION [Concomitant]
     Active Substance: CHLORIDE ION
     Dosage: UNK
  21. FLUTICASONE [Concomitant]
     Active Substance: FLUTICASONE
     Dosage: UNK

REACTIONS (1)
  - Death [Fatal]
